FAERS Safety Report 15742305 (Version 1)
Quarter: 2018Q4

REPORT INFORMATION
  Report Type: Spontaneous
  Country: US (occurrence: US)
  Receive Date: 20181219
  Receipt Date: 20181219
  Transmission Date: 20190205
  Serious: No
  Sender: FDA-Public Use
  Company Number: US-TARO-2018TAR00307

PATIENT
  Age: 62 Year
  Sex: Female
  Weight: 50.34 kg

DRUGS (6)
  1. CLOBETASOL PROPIONATE TOPICAL SOLUTION USP 0.05% [Suspect]
     Active Substance: CLOBETASOL PROPIONATE
     Indication: SEBORRHOEIC DERMATITIS
     Dosage: UNK, UP TO 2X/DAY
     Route: 061
     Dates: start: 20180101, end: 20180406
  2. CLOBETASOL PROPIONATE TOPICAL SOLUTION USP 0.05% [Suspect]
     Active Substance: CLOBETASOL PROPIONATE
     Dosage: UNK, UP TO 2X/DAY
     Route: 061
     Dates: start: 2016, end: 20171231
  3. METROGEL [Concomitant]
     Active Substance: METRONIDAZOLE
     Route: 061
  4. CLOBETASOL PROPIONATE TOPICAL SOLUTION USP 0.05% [Suspect]
     Active Substance: CLOBETASOL PROPIONATE
     Dosage: UNK, UP TO 2X/DAY
     Route: 061
     Dates: start: 20180407
  5. CLOBETASOL PROPIONATE TOPICAL SOLUTION USP 0.05% [Suspect]
     Active Substance: CLOBETASOL PROPIONATE
     Dosage: UNK, 3X/DAY TO 4X/DAY
     Route: 061
     Dates: start: 2018, end: 2018
  6. NYSTATIN + TRIAMCINOLONE [Concomitant]
     Route: 061

REACTIONS (7)
  - Drug ineffective [Recovered/Resolved]
  - Inappropriate schedule of product administration [Recovered/Resolved]
  - Product administered at inappropriate site [Not Recovered/Not Resolved]
  - Seborrhoeic dermatitis [Recovering/Resolving]
  - Product substitution issue [Recovered/Resolved]
  - Application site pain [Recovered/Resolved]
  - Incorrect product administration duration [Not Recovered/Not Resolved]

NARRATIVE: CASE EVENT DATE: 2016
